FAERS Safety Report 8140845-8 (Version None)
Quarter: 2012Q1

REPORT INFORMATION
  Report Type: 
  Country: None (occurrence: None)
  Receive Date: 20120216
  Receipt Date: 20120207
  Transmission Date: 20120608
  Serious: Yes (Hospitalization, Other)
  Sender: FDA-Public Use
  Company Number: DK-JNJFOC-20110906584

PATIENT
  Sex: Male

DRUGS (17)
  1. ZYPREXA [Suspect]
     Route: 065
     Dates: start: 19890101
  2. CISORDINOL [Suspect]
     Indication: SCHIZOPHRENIA, PARANOID TYPE
     Route: 065
     Dates: start: 19940101
  3. CISORDINOL [Suspect]
     Route: 065
     Dates: start: 19970101
  4. CISORDINOL [Suspect]
     Route: 065
     Dates: start: 19890101
  5. DEPAKENE [Suspect]
     Indication: PRODUCT USED FOR UNKNOWN INDICATION
     Route: 065
  6. ABILIFY [Suspect]
     Indication: PRODUCT USED FOR UNKNOWN INDICATION
     Route: 065
  7. CISORDINOL [Suspect]
     Route: 065
     Dates: start: 19950101, end: 19960101
  8. FLUPHENAZINE [Suspect]
     Route: 065
     Dates: start: 19890101
  9. NOZINAN [Suspect]
     Indication: PRODUCT USED FOR UNKNOWN INDICATION
     Route: 065
  10. RISPERDAL [Suspect]
     Route: 065
     Dates: start: 19890101
  11. FLUPHENAZINE [Suspect]
     Indication: SCHIZOPHRENIA, PARANOID TYPE
     Route: 065
     Dates: end: 19970101
  12. ZYPREXA [Suspect]
     Indication: SCHIZOPHRENIA, PARANOID TYPE
     Route: 065
     Dates: start: 19961113, end: 19961116
  13. SERDOLECT [Suspect]
     Indication: PRODUCT USED FOR UNKNOWN INDICATION
     Route: 065
  14. CISORDINOL [Suspect]
     Route: 065
  15. BURONIL [Suspect]
     Indication: PRODUCT USED FOR UNKNOWN INDICATION
     Route: 065
  16. RISPERDAL [Suspect]
     Indication: SCHIZOPHRENIA, PARANOID TYPE
     Route: 065
     Dates: start: 20111119, end: 20111205
  17. FLUPHENAZINE [Suspect]
     Route: 065
     Dates: start: 19960101

REACTIONS (10)
  - MENTAL DISORDER [None]
  - EXTRAPYRAMIDAL DISORDER [None]
  - DYSKINESIA [None]
  - GINGIVAL DISORDER [None]
  - FATIGUE [None]
  - ORAL DISORDER [None]
  - TREATMENT NONCOMPLIANCE [None]
  - TOOTH DISORDER [None]
  - TREMOR [None]
  - TINNITUS [None]
